FAERS Safety Report 13742917 (Version 1)
Quarter: 2017Q3

REPORT INFORMATION
  Report Type: Not Available
  Country: US (occurrence: US)
  Receive Date: 20170711
  Receipt Date: 20170711
  Transmission Date: 20171127
  Serious: Yes (Other)
  Sender: FDA-Public Use
  Company Number: US-IDTAUSTRALIA-2017-US-007625

PATIENT
  Age: 68 Year
  Sex: Male

DRUGS (3)
  1. AMANTADINE. [Concomitant]
     Active Substance: AMANTADINE HYDROCHLORIDE
  2. CARBIDOPA AND LEVODOPA (NON-SPECIFIC) [Suspect]
     Active Substance: CARBIDOPA\LEVODOPA
     Dosage: 4 TO 6 CRUSHED TABLETS 3 TIMES DAILY
     Route: 048
  3. GABAPENTIN. [Concomitant]
     Active Substance: GABAPENTIN

REACTIONS (1)
  - Neuralgia [Unknown]
